FAERS Safety Report 18822298 (Version 1)
Quarter: 2021Q1

REPORT INFORMATION
  Report Type: Other
  Country: PR (occurrence: PR)
  Receive Date: 20210202
  Receipt Date: 20210202
  Transmission Date: 20210419
  Serious: Yes (Hospitalization)
  Sender: FDA-Public Use
  Company Number: PR-B.BRAUN MEDICAL INC.-2106171

PATIENT
  Age: 28 Year
  Sex: Female

DRUGS (2)
  1. BICARBONATE IN DEXTROSE [Concomitant]
  2. LACTATED RINGERS SOLUTION [Suspect]
     Active Substance: CALCIUM CHLORIDE\POTASSIUM CHLORIDE\SODIUM CHLORIDE\SODIUM LACTATE
     Indication: FLUID REPLACEMENT
     Route: 042

REACTIONS (1)
  - Acidosis [Recovered/Resolved]
